FAERS Safety Report 23962370 (Version 1)
Quarter: 2024Q2

REPORT INFORMATION
  Report Type: Spontaneous
  Country: CN (occurrence: CN)
  Receive Date: 20240611
  Receipt Date: 20240611
  Transmission Date: 20240716
  Serious: Yes (Other)
  Sender: FDA-Public Use
  Company Number: CN-PFIZER INC-PV202400075385

PATIENT
  Age: 13 Year
  Sex: Male
  Weight: 49 kg

DRUGS (4)
  1. METHOTREXATE SODIUM [Suspect]
     Active Substance: METHOTREXATE SODIUM
     Indication: Acute lymphocytic leukaemia
     Dosage: 33 ML, 1X/DAY
     Route: 041
     Dates: start: 20240520, end: 20240521
  2. METHOTREXATE SODIUM [Suspect]
     Active Substance: METHOTREXATE SODIUM
     Indication: Chemotherapy
     Dosage: 7.5 ML, 1X/DAY
     Route: 041
     Dates: start: 20240520, end: 20240521
  3. SODIUM CHLORIDE [Concomitant]
     Active Substance: SODIUM CHLORIDE
     Indication: Vehicle solution use
     Dosage: 250 ML, 1X/DAY
     Route: 041
     Dates: start: 20240520, end: 20240521
  4. SODIUM CHLORIDE [Concomitant]
     Active Substance: SODIUM CHLORIDE
     Dosage: 25 ML, 1X/DAY
     Route: 041
     Dates: start: 20240520, end: 20240521

REACTIONS (1)
  - Drug level abnormal [Recovering/Resolving]

NARRATIVE: CASE EVENT DATE: 20240522
